FAERS Safety Report 24263104 (Version 2)
Quarter: 2025Q1

REPORT INFORMATION
  Report Type: Report from Study
  Country: CO (occurrence: CO)
  Receive Date: 20240829
  Receipt Date: 20250331
  Transmission Date: 20250409
  Serious: Yes (Hospitalization)
  Sender: ASTELLAS
  Company Number: CO-ASTELLAS-2024-AER-000443

PATIENT
  Age: 59 Year
  Sex: Female
  Weight: 68 kg

DRUGS (2)
  1. PROGRAF [Suspect]
     Active Substance: TACROLIMUS
     Indication: Renal transplant
     Dosage: PROGRAF XL 1MG (2 CAPSULES)
     Route: 048
     Dates: start: 20220217
  2. PROGRAF [Suspect]
     Active Substance: TACROLIMUS
     Indication: Renal transplant
     Dosage: PROGRAF XL 5MG (2 CAPSULES)
     Route: 048
     Dates: start: 20220217

REACTIONS (8)
  - Escherichia urinary tract infection [Unknown]
  - Cystitis [Unknown]
  - Blood creatinine increased [Unknown]
  - Bacterial infection [Unknown]
  - Discomfort [Unknown]
  - Diarrhoea [Unknown]
  - Urinary tract infection [Recovering/Resolving]
  - Urinary incontinence [Unknown]
